FAERS Safety Report 6508740-5 (Version None)
Quarter: 2009Q4

REPORT INFORMATION
  Report Type: 
  Country: None (occurrence: None)
  Receive Date: 20091221
  Receipt Date: 20090806
  Transmission Date: 20100525
  Serious: No
  Sender: FDA-Public Use
  Company Number: US-ASTRAZENECA-2009SE07074

PATIENT
  Age: 55 Year
  Sex: Female

DRUGS (7)
  1. CRESTOR [Suspect]
     Route: 048
  2. CRESTOR [Suspect]
     Route: 048
  3. DEPAKOTE ER [Concomitant]
  4. LISINOPRIL [Concomitant]
  5. ATENOLOL [Concomitant]
  6. ASPIRIN [Concomitant]
  7. XALATAN [Concomitant]

REACTIONS (6)
  - ABNORMAL DREAMS [None]
  - AGGRESSION [None]
  - AGITATION [None]
  - BLOOD PRESSURE INCREASED [None]
  - BODY HEIGHT DECREASED [None]
  - HEADACHE [None]
